FAERS Safety Report 12582415 (Version 1)
Quarter: 2016Q3

REPORT INFORMATION
  Report Type: Spontaneous
  Country: US (occurrence: None)
  Receive Date: 20160721
  Receipt Date: 20160721
  Transmission Date: 20161109
  Serious: No
  Sender: FDA-Public Use
  Company Number: None

PATIENT
  Age: 69 Year
  Sex: Female
  Weight: 88.45 kg

DRUGS (11)
  1. AMIODARONE [Concomitant]
     Active Substance: AMIODARONE
  2. ENTRESTO [Concomitant]
     Active Substance: SACUBITRIL\VALSARTAN
  3. LEFLUNOMIDE. [Concomitant]
     Active Substance: LEFLUNOMIDE
  4. CALCITRIOL. [Concomitant]
     Active Substance: CALCITRIOL
  5. PRAVASTATIN. [Concomitant]
     Active Substance: PRAVASTATIN
  6. METHOTREXATE 2.5MG TAB MYLAN [Suspect]
     Active Substance: METHOTREXATE
     Indication: RHEUMATOID ARTHRITIS
     Dosage: BY MOUTH 8 PILLS A WEEK??STOPPED  SOME
     Route: 048
     Dates: start: 201509, end: 201604
  7. CARVEDILOL. [Concomitant]
     Active Substance: CARVEDILOL
  8. VITAMIN D2 [Concomitant]
     Active Substance: ERGOCALCIFEROL
  9. GABAPENTIN. [Concomitant]
     Active Substance: GABAPENTIN
  10. BAYER LOW DOSE ASPIRIN [Concomitant]
  11. LUROSEMIDE [Concomitant]

REACTIONS (2)
  - Thermal burn [None]
  - Skin reaction [None]

NARRATIVE: CASE EVENT DATE: 201509
